FAERS Safety Report 7906152-0 (Version None)
Quarter: 2011Q4

REPORT INFORMATION
  Report Type: 
  Country: None (occurrence: None)
  Receive Date: 20111109
  Receipt Date: 20111109
  Transmission Date: 20120403
  Serious: No
  Sender: FDA-Public Use
  Company Number: None

PATIENT
  Age: 77 Year
  Sex: Female
  Weight: 56.6996 kg

DRUGS (1)
  1. BONIVA [Suspect]
     Indication: OSTEOPOROSIS
     Dosage: 1 TABLET 1/MONTH ORAL
     Route: 048
     Dates: start: 20110815, end: 20110917

REACTIONS (5)
  - ARTHRALGIA [None]
  - BONE PAIN [None]
  - VISUAL IMPAIRMENT [None]
  - MYALGIA [None]
  - PAIN IN JAW [None]
